FAERS Safety Report 20774406 (Version 1)
Quarter: 2022Q2

REPORT INFORMATION
  Report Type: Spontaneous
  Country: US (occurrence: None)
  Receive Date: 20220430
  Receipt Date: 20220430
  Transmission Date: 20220721
  Serious: Yes (Other)
  Sender: FDA-Public Use
  Company Number: None

PATIENT
  Age: 56 Year
  Sex: Female
  Weight: 99 kg

DRUGS (8)
  1. ESTRADIOL [Suspect]
     Active Substance: ESTRADIOL
     Indication: Hormone therapy
     Dosage: OTHER QUANTITY : 1 TABLET(S);?FREQUENCY : DAILY;?
     Route: 048
  2. ESTRADIOL [Concomitant]
     Active Substance: ESTRADIOL
  3. LOSARTAN [Concomitant]
     Active Substance: LOSARTAN
  4. MONTELUKAST [Concomitant]
     Active Substance: MONTELUKAST SODIUM
  5. Super B complex Vitamin D 2000 units [Concomitant]
  6. DOCUSATE SODIUM [Concomitant]
     Active Substance: DOCUSATE SODIUM
  7. Fexofenadrine 180mg [Concomitant]
  8. FAMOTIDINE [Concomitant]
     Active Substance: FAMOTIDINE

REACTIONS (5)
  - Headache [None]
  - Dizziness [None]
  - Hot flush [None]
  - Night sweats [None]
  - Suspected product quality issue [None]

NARRATIVE: CASE EVENT DATE: 20220401
